FAERS Safety Report 20230605 (Version 1)
Quarter: 2021Q4

REPORT INFORMATION
  Report Type: Report from Study
  Country: US (occurrence: US)
  Receive Date: 20211227
  Receipt Date: 20211227
  Transmission Date: 20220303
  Serious: Yes (Other)
  Sender: FDA-Public Use
  Company Number: US-ABBVIE-21K-163-3976114-00

PATIENT
  Sex: Female

DRUGS (2)
  1. HUMIRA [Suspect]
     Active Substance: ADALIMUMAB
     Indication: Ankylosing spondylitis
     Route: 058
     Dates: start: 20210416, end: 2021
  2. HUMIRA [Suspect]
     Active Substance: ADALIMUMAB
     Route: 058
     Dates: start: 2021

REACTIONS (13)
  - Cyst [Unknown]
  - Mobility decreased [Recovering/Resolving]
  - Loss of personal independence in daily activities [Not Recovered/Not Resolved]
  - Exercise tolerance decreased [Recovering/Resolving]
  - Joint range of motion decreased [Recovering/Resolving]
  - Fatigue [Unknown]
  - Dysstasia [Not Recovered/Not Resolved]
  - Asthenia [Unknown]
  - Cough [Unknown]
  - Sinusitis [Recovered/Resolved]
  - Ear discomfort [Recovered/Resolved]
  - Arthralgia [Unknown]
  - Foot fracture [Unknown]

NARRATIVE: CASE EVENT DATE: 20210101
